FAERS Safety Report 18365109 (Version 1)
Quarter: 2020Q4

REPORT INFORMATION
  Report Type: Spontaneous
  Country: US (occurrence: US)
  Receive Date: 20201009
  Receipt Date: 20201009
  Transmission Date: 20210114
  Serious: Yes (Hospitalization)
  Sender: FDA-Public Use
  Company Number: None

PATIENT
  Age: 75 Year
  Sex: Female

DRUGS (1)
  1. BOTOX [Suspect]
     Active Substance: ONABOTULINUMTOXINA
     Indication: ARTHRALGIA
     Dosage: FREQUENCY: Q3M
     Route: 058
     Dates: start: 20200508

REACTIONS (2)
  - Cervical vertebral fracture [None]
  - Therapy cessation [None]

NARRATIVE: CASE EVENT DATE: 202010
